FAERS Safety Report 7003272-2 (Version None)
Quarter: 2010Q3

REPORT INFORMATION
  Report Type: 
  Country: None (occurrence: None)
  Receive Date: 20100920
  Receipt Date: 20100908
  Transmission Date: 20110219
  Serious: Yes (Other)
  Sender: FDA-Public Use
  Company Number: ES-PFIZER INC-2010113819

PATIENT
  Age: 70 Year
  Sex: Female

DRUGS (3)
  1. LYRICA [Suspect]
     Indication: RESTLESS LEGS SYNDROME
     Dosage: 75 MG
     Route: 048
  2. LYRICA [Suspect]
     Dosage: 150 MG, 1X/DAY
     Route: 048
  3. PARACETAMOL [Concomitant]
     Indication: PAIN

REACTIONS (13)
  - ARTHRALGIA [None]
  - FORMICATION [None]
  - HIP FRACTURE [None]
  - ILL-DEFINED DISORDER [None]
  - INSOMNIA [None]
  - MALAISE [None]
  - PAIN [None]
  - PAIN IN EXTREMITY [None]
  - PARAESTHESIA [None]
  - PERIPHERAL COLDNESS [None]
  - RESTLESS LEGS SYNDROME [None]
  - TREMOR [None]
  - WHEELCHAIR USER [None]
